FAERS Safety Report 6104916-X (Version None)
Quarter: 2009Q1

REPORT INFORMATION
  Report Type: 
  Country: None (occurrence: None)
  Receive Date: 20090304
  Receipt Date: 20090216
  Transmission Date: 20090719
  Serious: Yes (Hospitalization, Other)
  Sender: FDA-Public Use
  Company Number: DSU-2009-00415

PATIENT
  Age: 52 Year
  Sex: Male
  Weight: 93.441 kg

DRUGS (10)
  1. BENICAR HCT [Suspect]
     Indication: HYPERTENSION
     Dosage: 40/25 MILLIGRAM (EVERY MORNING),PER ORAL
     Route: 048
     Dates: start: 20080101, end: 20080917
  2. TRILEPTAL [Suspect]
     Indication: EPILEPSY
     Dosage: 1800 (600 MG, TID), PER ORAL
     Route: 048
     Dates: start: 20080225
  3. ATIVAN (LORAZEPAM) (0.5 MILLIGRAM, TABLET) (LORAZEPAM) [Concomitant]
  4. ACETYLSALICYLIC ACID      (81 MILLIGRAM, TABLET) [Concomitant]
  5. CHANTIX DOSE PACK    (VARENICLINE) [Concomitant]
  6. VITAMIN B12 (CYANOCOBALAMIN)(CYANOCOBALAMIN) [Concomitant]
  7. ALLEGRA (FEXOFENADINE HYDROCHLORIDE)(CAPSULE) [Concomitant]
  8. ANDROGEL [Concomitant]
  9. TRICOR           (FENOFIBRATE) (145 MILLIGRAM, TABLET) [Concomitant]
  10. PREVACID [Concomitant]

REACTIONS (11)
  - CONFUSIONAL STATE [None]
  - CONVULSION [None]
  - DISORIENTATION [None]
  - DIZZINESS [None]
  - ERECTILE DYSFUNCTION [None]
  - FALL [None]
  - HYPONATRAEMIA [None]
  - MUSCULOSKELETAL STIFFNESS [None]
  - SLEEP DISORDER [None]
  - TYPE 2 DIABETES MELLITUS [None]
  - UNRESPONSIVE TO STIMULI [None]
